FAERS Safety Report 22036259 (Version 7)
Quarter: 2024Q1

REPORT INFORMATION
  Report Type: Report from Study
  Country: US (occurrence: US)
  Receive Date: 20230225
  Receipt Date: 20240212
  Transmission Date: 20240409
  Serious: No
  Sender: FDA-Public Use
  Company Number: US-002147023-NVSC2023US043376

PATIENT
  Sex: Female

DRUGS (14)
  1. COSENTYX [Suspect]
     Active Substance: SECUKINUMAB
     Indication: Psoriasis
     Dosage: 300 MG, QW (ONCE A WEEK FOR 5 WEEKS)
     Route: 058
  2. COSENTYX [Suspect]
     Active Substance: SECUKINUMAB
     Dosage: 300 MG, QMO (Q 4 WEEKS)
     Route: 058
  3. COSENTYX [Suspect]
     Active Substance: SECUKINUMAB
     Dosage: 300 MG, QMO (2 PENS, PEN INJECTOR)
     Route: 058
     Dates: start: 20220429
  4. ELIDEL [Suspect]
     Active Substance: PIMECROLIMUS
     Indication: Psoriasis
     Dosage: UNK
     Route: 065
  5. CALCIPOTRIENE [Concomitant]
     Active Substance: CALCIPOTRIENE
     Indication: Product used for unknown indication
     Dosage: UNK
     Route: 061
  6. CLOBETASOL [Concomitant]
     Active Substance: CLOBETASOL
     Indication: Product used for unknown indication
     Dosage: UNK, BID (TO BOTH FEET IN THE PM)
     Route: 061
  7. FABIOR [Concomitant]
     Active Substance: TAZAROTENE
     Indication: Product used for unknown indication
     Dosage: UNK, QD (FOAM, APPLY TO BOTH FEET AT BEDTIME)
     Route: 061
  8. METROCREAM [Concomitant]
     Active Substance: METRONIDAZOLE
     Indication: Product used for unknown indication
     Dosage: UNK
     Route: 061
  9. CITALOPRAM [Concomitant]
     Active Substance: CITALOPRAM HYDROBROMIDE
     Indication: Product used for unknown indication
     Dosage: UNK
     Route: 048
  10. CLARITIN [Concomitant]
     Active Substance: LORATADINE
     Indication: Product used for unknown indication
     Dosage: UNK (LIQUI-GEL)
     Route: 048
  11. MELOXICAM [Concomitant]
     Active Substance: MELOXICAM
     Indication: Product used for unknown indication
     Dosage: UNK
     Route: 048
  12. PROTONIX [Concomitant]
     Active Substance: PANTOPRAZOLE SODIUM
     Indication: Product used for unknown indication
     Dosage: UNK (DELAYED RELEASE TABLET, DR/EC)
     Route: 048
  13. TRIAMCINOLONE ACETONIDE [Concomitant]
     Active Substance: TRIAMCINOLONE ACETONIDE
     Indication: Product used for unknown indication
     Dosage: UNK
     Route: 065
  14. EUCERIN [Concomitant]
     Active Substance: ENSULIZOLE\EUCERIN\OCTINOXATE\OCTISALATE\TITANIUM DIOXIDE\ZINC OXIDE
     Indication: Product used for unknown indication
     Dosage: UNK, QD (FEET NIGHTLY)
     Route: 065

REACTIONS (15)
  - Joint lock [Unknown]
  - Joint swelling [Unknown]
  - Diarrhoea [Unknown]
  - Skin haemorrhage [Unknown]
  - Discomfort [Unknown]
  - Pruritus [Unknown]
  - Skin exfoliation [Unknown]
  - Skin abrasion [Unknown]
  - Skin lesion [Unknown]
  - Rebound effect [Unknown]
  - Condition aggravated [Unknown]
  - Injection site bruising [Unknown]
  - Drug ineffective [Unknown]
  - Treatment failure [Unknown]
  - Therapeutic product effect incomplete [Recovering/Resolving]
